FAERS Safety Report 13519262 (Version 1)
Quarter: 2017Q2

REPORT INFORMATION
  Report Type: Report from Study
  Country: CA (occurrence: CA)
  Receive Date: 20170505
  Receipt Date: 20170505
  Transmission Date: 20170830
  Serious: Yes (Hospitalization, Other)
  Sender: FDA-Public Use
  Company Number: CA-GILEAD-2017-0269414

PATIENT
  Age: 53 Year
  Sex: Male

DRUGS (1)
  1. SOFOSBUVIR W/VELPATASVIR [Suspect]
     Active Substance: SOFOSBUVIR\VELPATASVIR
     Indication: HEPATITIS C VIRUS TEST POSITIVE
     Dosage: 1 DF, UNK
     Route: 048
     Dates: start: 20170122, end: 20170412

REACTIONS (7)
  - Drug ineffective [Not Recovered/Not Resolved]
  - Pathogen resistance [Unknown]
  - Aphasia [Unknown]
  - Malaise [Not Recovered/Not Resolved]
  - Localised infection [Unknown]
  - Blood count abnormal [Unknown]
  - Asthenia [Unknown]
